FAERS Safety Report 6104948-1 (Version None)
Quarter: 2009Q1

REPORT INFORMATION
  Report Type: 
  Country: None (occurrence: None)
  Receive Date: 20090304
  Receipt Date: 20090304
  Transmission Date: 20090719
  Serious: Yes (Hospitalization)
  Sender: FDA-Public Use
  Company Number: None

PATIENT
  Sex: Female
  Weight: 88 kg

DRUGS (7)
  1. NOLVADEX [Suspect]
     Dosage: 20 MG
  2. LEVOTHYROXINE [Concomitant]
  3. METOPROLOL TARTRATE [Concomitant]
  4. OXYCONTIN [Concomitant]
  5. OXYCEL [Concomitant]
  6. PROZAC [Concomitant]
  7. XANAX [Concomitant]

REACTIONS (8)
  - ARTHRALGIA [None]
  - FALL [None]
  - FEMORAL NECK FRACTURE [None]
  - GAIT DISTURBANCE [None]
  - HEAD INJURY [None]
  - UNEVALUABLE EVENT [None]
  - UROSEPSIS [None]
  - WHEELCHAIR USER [None]
